FAERS Safety Report 8361546-7 (Version None)
Quarter: 2012Q2

REPORT INFORMATION
  Report Type: 
  Country: None (occurrence: None)
  Receive Date: 20120515
  Receipt Date: 20120507
  Transmission Date: 20120825
  Serious: Yes (Hospitalization, Other)
  Sender: FDA-Public Use
  Company Number: US-BAYER-2011-112550

PATIENT
  Age: 31 Year
  Sex: Female
  Weight: 142 kg

DRUGS (10)
  1. YAZ [Suspect]
     Indication: CONTRACEPTION
     Dosage: UNK
     Dates: start: 20040715, end: 20051201
  2. NEXIUM [Concomitant]
  3. YASMIN [Suspect]
     Indication: CONTRACEPTION
     Dosage: UNK
     Dates: start: 20040715, end: 20051201
  4. DIURETICS [Concomitant]
  5. NSAID'S [Concomitant]
     Dosage: UNK UNK, AS NEEDED.
  6. METFORMIN HCL [Concomitant]
  7. IBUPROFEN [Concomitant]
  8. ZITHROMAX [Concomitant]
     Indication: UPPER RESPIRATORY TRACT INFECTION
     Dosage: UNK
     Dates: start: 20060905
  9. HYDROCODONE BITARTRATE [Concomitant]
  10. BACTRIM DS [Concomitant]
     Dosage: UNK
     Dates: start: 20060901

REACTIONS (4)
  - PAIN [None]
  - DEEP VEIN THROMBOSIS [None]
  - CHOLECYSTITIS [None]
  - PULMONARY EMBOLISM [None]
